FAERS Safety Report 4681304-4 (Version None)
Quarter: 2005Q2

REPORT INFORMATION
  Report Type: 
  Country: None (occurrence: None)
  Receive Date: 20050602
  Receipt Date: 20050602
  Transmission Date: 20051028
  Serious: Yes (Life-Threatening)
  Sender: FDA-Public Use
  Company Number: None

PATIENT
  Age: 67 Year
  Sex: Female
  Weight: 73 kg

DRUGS (3)
  1. SEROQUEL [Suspect]
     Indication: DEPRESSION
     Dosage: TWO TABS   DAILY    ORAL
     Route: 048
     Dates: start: 20050501, end: 20050501
  2. PROZAC [Suspect]
     Indication: DEPRESSION
     Dosage: ONE TAB   DAILY  ORAL
     Route: 048
     Dates: start: 20050501, end: 20050501
  3. ALTACE [Concomitant]

REACTIONS (2)
  - CARDIAC ARREST [None]
  - VENTRICULAR FIBRILLATION [None]
